FAERS Safety Report 18491561 (Version 1)
Quarter: 2020Q4

REPORT INFORMATION
  Report Type: Report from Study
  Country: DO (occurrence: DO)
  Receive Date: 20201111
  Receipt Date: 20201111
  Transmission Date: 20210114
  Serious: Yes (Other)
  Sender: FDA-Public Use
  Company Number: NVSC2020DO297106

PATIENT
  Age: 60 Year
  Sex: Female

DRUGS (2)
  1. VYMADA [Suspect]
     Active Substance: SACUBITRIL\VALSARTAN
     Indication: PRODUCT USED FOR UNKNOWN INDICATION
     Dosage: 0.5 DF OF 100 MG (SPLIT INTO 2), BID
     Route: 065
     Dates: start: 202005
  2. VYMADA [Suspect]
     Active Substance: SACUBITRIL\VALSARTAN
     Dosage: 0.5 DF OF 200 MG (SPLIT INTO 4), UNKNOWN
     Route: 065

REACTIONS (4)
  - Diabetic complication [Unknown]
  - Cardiac failure [Unknown]
  - Underdose [Unknown]
  - Wrong technique in product usage process [Unknown]
